FAERS Safety Report 4709011-X (Version None)
Quarter: 2005Q3

REPORT INFORMATION
  Report Type: 
  Country: None (occurrence: None)
  Receive Date: 20050707
  Receipt Date: 20050622
  Transmission Date: 20060218
  Serious: Yes (Death, Hospitalization, Other)
  Sender: FDA-Public Use
  Company Number: HQWYE635023JUN05

PATIENT
  Age: 24 Year
  Sex: Male

DRUGS (1)
  1. MYLOTARG [Suspect]
     Dates: start: 20050301, end: 20050301

REACTIONS (3)
  - ACUTE RESPIRATORY DISTRESS SYNDROME [None]
  - BIOPSY LUNG ABNORMAL [None]
  - LUNG DISORDER [None]
